FAERS Safety Report 7261203-4 (Version None)
Quarter: 2011Q1

REPORT INFORMATION
  Report Type: 
  Country: None (occurrence: None)
  Receive Date: 20110130
  Receipt Date: 20100924
  Transmission Date: 20110831
  Serious: No
  Sender: FDA-Public Use
  Company Number: US-ABBOTT-10P-163-0674137-00

PATIENT
  Sex: Female
  Weight: 99.88 kg

DRUGS (2)
  1. HUMIRA [Suspect]
     Indication: PSORIASIS
     Dosage: ON TUESDAY
     Route: 058
     Dates: start: 20090101, end: 20100401
  2. HUMIRA [Suspect]
     Dosage: ON TUESDAY
     Route: 058
     Dates: start: 20100801

REACTIONS (3)
  - DRUG DOSE OMISSION [None]
  - PSORIASIS [None]
  - SKIN EXFOLIATION [None]
